FAERS Safety Report 7823911-3 (Version None)
Quarter: 2011Q4

REPORT INFORMATION
  Report Type: 
  Country: None (occurrence: None)
  Receive Date: 20111019
  Receipt Date: 20111014
  Transmission Date: 20120403
  Serious: Yes (Other)
  Sender: FDA-Public Use
  Company Number: US-PFIZER INC-2011054483

PATIENT
  Sex: Male

DRUGS (1)
  1. CHANTIX [Suspect]
     Indication: SMOKING CESSATION THERAPY
     Dosage: 1/2 MG TO 1MG
     Dates: start: 20070901, end: 20080601

REACTIONS (4)
  - SUICIDAL IDEATION [None]
  - INJURY [None]
  - AGGRESSION [None]
  - HOMICIDAL IDEATION [None]
